FAERS Safety Report 10647281 (Version 2)
Quarter: 2015Q1

REPORT INFORMATION
  Report Type: Spontaneous
  Country: DE (occurrence: DE)
  Receive Date: 20141211
  Receipt Date: 20150116
  Transmission Date: 20150720
  Serious: No
  Sender: FDA-Public Use
  Company Number: DE-ALLERGAN-1425075US

PATIENT
  Age: 69 Year
  Sex: Male

DRUGS (5)
  1. VITAMIN B12 [Concomitant]
     Active Substance: CYANOCOBALAMIN
     Indication: VITAMIN SUPPLEMENTATION
  2. TROSPIUM CHLORIDE UNK [Suspect]
     Active Substance: TROSPIUM CHLORIDE
     Indication: HYPERTONIC BLADDER
     Dosage: UNK
     Dates: start: 201411
  3. L-THYROXIN [Concomitant]
     Active Substance: LEVOTHYROXINE SODIUM
  4. RETARON [Concomitant]
     Indication: SUPPLEMENTATION THERAPY
  5. TAMSULOSIN [Concomitant]
     Active Substance: TAMSULOSIN
     Indication: DYSURIA
     Dosage: UNK, UNK
     Dates: start: 20141123

REACTIONS (3)
  - Vitreous detachment [Recovering/Resolving]
  - Retinal tear [Not Recovered/Not Resolved]
  - Vitreous disorder [Not Recovered/Not Resolved]

NARRATIVE: CASE EVENT DATE: 201411
